FAERS Safety Report 5223778-6 (Version None)
Quarter: 2007Q1

REPORT INFORMATION
  Report Type: 
  Country: None (occurrence: None)
  Receive Date: 20070130
  Receipt Date: 20070124
  Transmission Date: 20070707
  Serious: Yes (Other)
  Sender: FDA-Public Use
  Company Number: 2007UW01532

PATIENT
  Sex: Female

DRUGS (1)
  1. SYMBICORT [Suspect]
     Route: 055
     Dates: start: 20070124

REACTIONS (4)
  - ACCIDENTAL OVERDOSE [None]
  - FLUSHING [None]
  - MEDICATION ERROR [None]
  - PALPITATIONS [None]
